FAERS Safety Report 4488814-3 (Version None)
Quarter: 2004Q4

REPORT INFORMATION
  Report Type: 
  Country: None (occurrence: None)
  Receive Date: 20041029
  Receipt Date: 20041020
  Transmission Date: 20050328
  Serious: Yes (Death, Life-Threatening, Disabling)
  Sender: FDA-Public Use
  Company Number: BR-MERCK-0410BRA00397

PATIENT
  Age: 79 Year
  Sex: Male

DRUGS (3)
  1. VIOXX [Suspect]
     Indication: PAIN
     Route: 048
     Dates: start: 20040115, end: 20040607
  2. DIGOXIN [Concomitant]
     Indication: PAIN
     Route: 065
  3. AMILORIDE HYDROCHLORIDE AND HYDROCHLOROTHIAZIDE [Concomitant]
     Route: 065

REACTIONS (4)
  - ARRHYTHMIA [None]
  - CARDIAC FAILURE [None]
  - CARDIOMYOPATHY [None]
  - FEELING ABNORMAL [None]
